FAERS Safety Report 7036377-0 (Version None)
Quarter: 2010Q4

REPORT INFORMATION
  Report Type: 
  Country: None (occurrence: None)
  Receive Date: 20101008
  Receipt Date: 20100928
  Transmission Date: 20110411
  Serious: Yes (Hospitalization)
  Sender: FDA-Public Use
  Company Number: US-ABBOTT-10P-163-0674462-00

PATIENT
  Sex: Male

DRUGS (10)
  1. NIASPAN [Suspect]
     Indication: LOW DENSITY LIPOPROTEIN INCREASED
     Dates: start: 20100701, end: 20100912
  2. NOVOLOG [Concomitant]
     Indication: DIABETES MELLITUS
  3. DIOVAN HCT [Concomitant]
     Indication: HYPERTENSION
     Dosage: 320/25
  4. PROGRAF [Concomitant]
     Indication: PROPHYLAXIS AGAINST TRANSPLANT REJECTION
     Dosage: 2MG IN AM AND 3 MG IN PM
  5. FENOFIBRATE [Concomitant]
     Indication: CARDIAC DISORDER
  6. OMEPRAZOLE [Concomitant]
     Indication: DYSPEPSIA
  7. FEXOFENADINE HCL [Concomitant]
     Indication: HYPERSENSITIVITY
  8. ANDROGEL [Concomitant]
     Indication: BLOOD TESTOSTERONE DECREASED
     Route: 061
  9. MAGNESIUM [Concomitant]
     Indication: BILE OUTPUT DECREASED
  10. OSCAL PLUS D [Concomitant]
     Indication: BONE DENSITY ABNORMAL

REACTIONS (6)
  - BURNING SENSATION [None]
  - CONVULSION [None]
  - DIZZINESS [None]
  - HOT FLUSH [None]
  - MYOCARDIAL INFARCTION [None]
  - SYNCOPE [None]
